FAERS Safety Report 24703209 (Version 1)
Quarter: 2024Q4

REPORT INFORMATION
  Report Type: Spontaneous
  Country: BR (occurrence: BR)
  Receive Date: 20241205
  Receipt Date: 20241205
  Transmission Date: 20250115
  Serious: Yes (Other)
  Sender: BRISTOL-MYERS SQUIBB COMPANY
  Company Number: BR-BRISTOL-MYERS SQUIBB COMPANY-2024-187281

PATIENT

DRUGS (12)
  1. POMALYST [Suspect]
     Active Substance: POMALIDOMIDE
     Indication: Plasma cell myeloma
     Dosage: DOSE : 4 MG;     FREQ : UNAVAILABLE
     Route: 048
     Dates: start: 20240814
  2. POMALYST [Suspect]
     Active Substance: POMALIDOMIDE
     Dosage: 2MG (EVERY OTHER DAY) - 14 DAYS.
     Route: 048
     Dates: start: 20241016
  3. POMALYST [Suspect]
     Active Substance: POMALIDOMIDE
     Route: 048
     Dates: start: 20240918
  4. POMALYST [Suspect]
     Active Substance: POMALIDOMIDE
     Dosage: 2MG (EVERY OTHER DAY) - 14 DAYS.
     Route: 048
     Dates: start: 20241113
  5. DEXAMETHASONE [Suspect]
     Active Substance: DEXAMETHASONE
     Indication: Plasma cell myeloma
     Dosage: 5 TABLETS 4MG ON THURSDAYS
     Dates: start: 20240814
  6. DEXAMETHASONE [Suspect]
     Active Substance: DEXAMETHASONE
     Dosage: 5 TABLETS 4MG ON THURSDAYS
     Dates: start: 20240918
  7. DEXAMETHASONE [Suspect]
     Active Substance: DEXAMETHASONE
     Dosage: 5 TABLETS 4MG ON THURSDAYS
     Dates: start: 20241016
  8. DEXAMETHASONE [Suspect]
     Active Substance: DEXAMETHASONE
     Dosage: 5 TABLETS 4MG ON THURSDAYS
     Dates: start: 20241113
  9. BORTEZOMIB [Suspect]
     Active Substance: BORTEZOMIB
     Indication: Plasma cell myeloma
     Dates: start: 20240814
  10. BORTEZOMIB [Suspect]
     Active Substance: BORTEZOMIB
     Dates: start: 20240918
  11. BORTEZOMIB [Suspect]
     Active Substance: BORTEZOMIB
     Dates: start: 20241016
  12. BORTEZOMIB [Suspect]
     Active Substance: BORTEZOMIB
     Dates: start: 20241113

REACTIONS (2)
  - Myelosuppression [Unknown]
  - Off label use [Unknown]
